FAERS Safety Report 5297724-3 (Version None)
Quarter: 2007Q2

REPORT INFORMATION
  Report Type: 
  Country: None (occurrence: None)
  Receive Date: 20070406
  Receipt Date: 20070322
  Transmission Date: 20071010
  Serious: Yes (Disabling, Other)
  Sender: FDA-Public Use
  Company Number: 6031303

PATIENT
  Age: 63 Year
  Sex: Male

DRUGS (10)
  1. ATENOLOL [Suspect]
     Indication: DRUG USE FOR UNKNOWN INDICATION
     Dosage: 50,000 MG (50 MG, 1 IN 1 D) ORAL
     Route: 048
  2. METFORMIN HCL [Concomitant]
  3. PRAZOSIN GITS [Concomitant]
  4. PANADOL OSTEO (PARACETAMOL) [Concomitant]
  5. KARVEZIDE (HYDROCHLOROTHIAZIDE, IRBESARTAN) [Concomitant]
  6. SERTRALINE [Concomitant]
  7. INSULIN (INSULIN) [Concomitant]
  8. DERALIN (PROPRANOLOL) [Concomitant]
  9. HYDOPA (METHYLDOPA) [Concomitant]
  10. MONOPRIL [Concomitant]

REACTIONS (4)
  - AMNESIA [None]
  - CONDITION AGGRAVATED [None]
  - CONFUSIONAL STATE [None]
  - ESSENTIAL TREMOR [None]
